FAERS Safety Report 8077776-8 (Version None)
Quarter: 2012Q1

REPORT INFORMATION
  Report Type: 
  Country: None (occurrence: None)
  Receive Date: 20120127
  Receipt Date: 20120121
  Transmission Date: 20120608
  Serious: Yes (Other)
  Sender: FDA-Public Use
  Company Number: CHPA2012US001817

PATIENT
  Age: 49 Year
  Sex: Male

DRUGS (1)
  1. EXCEDRIN EXTRA STRENGTH TABLETS [Suspect]
     Indication: HEADACHE
     Dosage: 2 DF, UNK
     Route: 048
     Dates: end: 20120120

REACTIONS (7)
  - ANXIETY [None]
  - DECREASED APPETITE [None]
  - NIGHTMARE [None]
  - HOT FLUSH [None]
  - TREMOR [None]
  - CONVULSION [None]
  - INSOMNIA [None]
